FAERS Safety Report 5069086-8 (Version None)
Quarter: 2006Q3

REPORT INFORMATION
  Report Type: 
  Country: None (occurrence: None)
  Receive Date: 20060731
  Receipt Date: 20060717
  Transmission Date: 20061208
  Serious: Yes (Death, Other)
  Sender: FDA-Public Use
  Company Number: 2006US001547

PATIENT
  Age: 57 Year
  Sex: Female

DRUGS (3)
  1. PROGRAF [Suspect]
     Indication: PROPHYLAXIS AGAINST TRANSPLANT REJECTION
  2. RAPAMYCIN(SIROLIMUS) [Suspect]
     Indication: PROPHYLAXIS AGAINST TRANSPLANT REJECTION
  3. PREDNISONE TAB [Suspect]
     Indication: PROPHYLAXIS AGAINST TRANSPLANT REJECTION

REACTIONS (11)
  - BILIARY ANASTOMOSIS COMPLICATION [None]
  - COMPLICATIONS OF TRANSPLANTED LIVER [None]
  - GRANULOMATOUS LIVER DISEASE [None]
  - HEPATIC NECROSIS [None]
  - HERPES SIMPLEX [None]
  - PATHOGEN RESISTANCE [None]
  - PSEUDOMONAL SEPSIS [None]
  - RENAL FAILURE ACUTE [None]
  - SYSTEMIC CANDIDA [None]
  - TRANSPLANT ABSCESS [None]
  - WOUND INFECTION [None]
